FAERS Safety Report 7875487-2 (Version None)
Quarter: 2011Q4

REPORT INFORMATION
  Report Type: 
  Country: None (occurrence: None)
  Receive Date: 20111031
  Receipt Date: 20111025
  Transmission Date: 20120403
  Serious: Yes (Other)
  Sender: FDA-Public Use
  Company Number: PHHY2011GR94667

PATIENT
  Age: 3 Year
  Sex: Male

DRUGS (1)
  1. EXJADE [Suspect]
     Indication: THALASSAEMIA BETA
     Dates: start: 20100526

REACTIONS (2)
  - HEPATIC ENZYME INCREASED [None]
  - URINE ALBUMIN/CREATININE RATIO INCREASED [None]
